FAERS Safety Report 16276531 (Version 1)
Quarter: 2019Q2

REPORT INFORMATION
  Report Type: Not Available
  Country: US (occurrence: US)
  Receive Date: 20190505
  Receipt Date: 20190505
  Transmission Date: 20190711
  Serious: No
  Sender: FDA-Public Use
  Company Number: US-NEUROCRINE BIOSCIENCES INC.-2019NBI01078

PATIENT
  Sex: Female

DRUGS (12)
  1. VITAMIN D2 [Concomitant]
     Active Substance: ERGOCALCIFEROL
  2. LAMOTRIGINE. [Concomitant]
     Active Substance: LAMOTRIGINE
  3. FISH OIL [Concomitant]
     Active Substance: FISH OIL
  4. LEVOTHYROXINE. [Concomitant]
     Active Substance: LEVOTHYROXINE
  5. MULTIVITAMIN [Concomitant]
     Active Substance: VITAMINS
  6. INGREZZA [Suspect]
     Active Substance: VALBENAZINE
     Indication: TARDIVE DYSKINESIA
     Route: 048
  7. OMEPRAZOLE. [Concomitant]
     Active Substance: OMEPRAZOLE
  8. LITHIUM. [Concomitant]
     Active Substance: LITHIUM
  9. CALCIUM [Concomitant]
     Active Substance: CALCIUM
  10. RISPERIDONE. [Concomitant]
     Active Substance: RISPERIDONE
  11. SIMVASTATIN. [Concomitant]
     Active Substance: SIMVASTATIN
  12. ASPIRIN. [Concomitant]
     Active Substance: ASPIRIN

REACTIONS (2)
  - Somnolence [Unknown]
  - Fatigue [Unknown]
